FAERS Safety Report 7989382-1 (Version None)
Quarter: 2011Q4

REPORT INFORMATION
  Report Type: 
  Country: None (occurrence: None)
  Receive Date: 20111216
  Receipt Date: 20111216
  Transmission Date: 20120403
  Serious: No
  Sender: FDA-Public Use
  Company Number: None

PATIENT
  Age: 43 Year
  Sex: Male

DRUGS (1)
  1. DILANTIN [Suspect]
     Dates: start: 20090913, end: 20090914

REACTIONS (16)
  - SNORING [None]
  - UNRESPONSIVE TO STIMULI [None]
  - HYPERHIDROSIS [None]
  - RENAL FAILURE [None]
  - ACUTE HEPATIC FAILURE [None]
  - HEPATITIS [None]
  - CLONUS [None]
  - HEPATIC FIBROSIS [None]
  - LIVER INJURY [None]
  - FALL [None]
  - WHITE BLOOD CELL COUNT INCREASED [None]
  - CONDITION AGGRAVATED [None]
  - HEPATOTOXICITY [None]
  - RHABDOMYOLYSIS [None]
  - HEPATIC NECROSIS [None]
  - HEPATIC STEATOSIS [None]
